FAERS Safety Report 5465506-5 (Version None)
Quarter: 2007Q3

REPORT INFORMATION
  Report Type: 
  Country: None (occurrence: None)
  Receive Date: 20070924
  Receipt Date: 20000125
  Transmission Date: 20080115
  Serious: Yes (Other)
  Sender: FDA-Public Use
  Company Number: FR-PFIZER INC-2006121036

PATIENT
  Sex: Male
  Weight: 87 kg

DRUGS (8)
  1. IRINOTECAN HCL [Suspect]
     Indication: COLON CANCER
     Route: 042
     Dates: start: 20000105, end: 20000105
  2. FLUOROURACIL [Suspect]
     Indication: COLON CANCER
     Route: 042
     Dates: start: 20000105, end: 20000106
  3. FOLINIC ACID [Concomitant]
     Indication: COLON CANCER
     Route: 042
     Dates: start: 20000105, end: 20000105
  4. MEDROL [Concomitant]
     Indication: PAIN
     Route: 048
     Dates: start: 19991101, end: 20000601
  5. OMEPRAZOLE [Concomitant]
     Indication: GASTRIC ULCER
     Dosage: DAILY DOSE:20MG
     Route: 048
     Dates: start: 19991101, end: 20000601
  6. RIVOTRIL [Concomitant]
     Indication: PAIN
     Dosage: DAILY DOSE:75DROP
     Route: 048
     Dates: start: 19991101, end: 20000601
  7. SKENAN [Concomitant]
     Indication: PAIN
     Dosage: DAILY DOSE:180MG
     Route: 048
     Dates: start: 19991101, end: 20000601
  8. ZOFRAN [Concomitant]
     Route: 042
     Dates: start: 20000105, end: 20000106

REACTIONS (1)
  - HEPATIC FUNCTION ABNORMAL [None]
